FAERS Safety Report 7989012-9 (Version None)
Quarter: 2011Q4

REPORT INFORMATION
  Report Type: 
  Country: None (occurrence: None)
  Receive Date: 20111219
  Receipt Date: 20111208
  Transmission Date: 20120403
  Serious: Yes (Hospitalization)
  Sender: FDA-Public Use
  Company Number: JP-GENZYME-THYM-1002258

PATIENT
  Sex: Female
  Weight: 45 kg

DRUGS (4)
  1. RED BLOOD CELLS, CONCENTRATED [Concomitant]
     Indication: APLASTIC ANAEMIA
     Dosage: UNK
  2. METHYLPREDNISOLONE SODIUM SUCCINATE [Concomitant]
     Indication: PREMEDICATION
     Dosage: UNK
     Dates: start: 20110111, end: 20110112
  3. CYCLOSPORINE [Concomitant]
     Indication: APLASTIC ANAEMIA
     Dosage: UNK
     Dates: start: 20110111
  4. THYMOGLOBULIN [Suspect]
     Dosage: 2.5 MG, QD
     Route: 042
     Dates: start: 20110111, end: 20110111

REACTIONS (1)
  - SHOCK [None]
